FAERS Safety Report 17047336 (Version 1)
Quarter: 2019Q4

REPORT INFORMATION
  Report Type: Spontaneous
  Country: US (occurrence: US)
  Receive Date: 20191119
  Receipt Date: 20191119
  Transmission Date: 20200122
  Serious: No
  Sender: FDA-Public Use
  Company Number: US-BAYER-2019-208098

PATIENT
  Age: 85 Year
  Sex: Male
  Weight: 77 kg

DRUGS (1)
  1. CLARITIN [Suspect]
     Active Substance: LORATADINE
     Indication: PARANASAL SINUS HYPERSECRETION
     Dosage: 1 DF, QD
     Route: 048

REACTIONS (1)
  - Drug ineffective [Unknown]
